FAERS Safety Report 13855260 (Version 1)
Quarter: 2017Q3

REPORT INFORMATION
  Report Type: Spontaneous
  Country: US (occurrence: US)
  Receive Date: 20170810
  Receipt Date: 20170810
  Transmission Date: 20171127
  Serious: No
  Sender: FDA-Public Use
  Company Number: US-TEIKOKU PHARMA USA-TPU2017-00359

PATIENT
  Age: 52 Year
  Sex: Male
  Weight: 73.55 kg

DRUGS (4)
  1. NORCO [Concomitant]
     Active Substance: ACETAMINOPHEN\HYDROCODONE BITARTRATE
     Indication: PAIN
     Dosage: 3 TABLETS PER DAY
  2. TRAMADOL. [Concomitant]
     Active Substance: TRAMADOL
     Dosage: 4 TABLETS PER DAY
  3. MELOXICAM. [Concomitant]
     Active Substance: MELOXICAM
     Indication: INFLAMMATION
     Dates: start: 2014
  4. LIDOCAINE PATCH [Suspect]
     Active Substance: LIDOCAINE
     Indication: MUSCULOSKELETAL PAIN
     Dosage: APPLY 1 PATCH TO EACH SHOULDER AFTER A BATH, REMOVE AT NOON THE NEXT DAY, APPLIED FOR APPROXIMATELY
     Route: 061
     Dates: start: 2014, end: 201706

REACTIONS (4)
  - Pain [Not Recovered/Not Resolved]
  - Drug ineffective for unapproved indication [Not Recovered/Not Resolved]
  - Wrong technique in product usage process [Unknown]
  - Application site perspiration [Unknown]

NARRATIVE: CASE EVENT DATE: 201706
